FAERS Safety Report 4266295-2 (Version None)
Quarter: 2004Q1

REPORT INFORMATION
  Report Type: 
  Country: None (occurrence: None)
  Receive Date: 20040107
  Receipt Date: 20031125
  Transmission Date: 20041129
  Serious: Yes (Death)
  Sender: FDA-Public Use
  Company Number: WAES 0312GBR00004

PATIENT
  Age: 33 Week
  Sex: Male

DRUGS (5)
  1. AMPHOTERICIN B [Concomitant]
  2. AMPHOTERICIN B [Concomitant]
  3. CANCIDAS [Suspect]
     Route: 051
  4. CANCIDAS [Suspect]
     Route: 051
  5. FLUCYTOSINE [Concomitant]

REACTIONS (2)
  - DRUG INEFFECTIVE [None]
  - OFF LABEL USE [None]
